FAERS Safety Report 25021033 (Version 1)
Quarter: 2025Q1

REPORT INFORMATION
  Report Type: Spontaneous
  Country: US (occurrence: US)
  Receive Date: 20250227
  Receipt Date: 20250227
  Transmission Date: 20250408
  Serious: Yes (Other)
  Sender: ENDO
  Company Number: US-ENDO USA, INC.-2025-000722

PATIENT
  Age: 65 Year
  Sex: Male

DRUGS (1)
  1. AVEED [Suspect]
     Active Substance: TESTOSTERONE UNDECANOATE
     Indication: Testicular failure
     Route: 065
     Dates: start: 20171207

REACTIONS (1)
  - Proctectomy [Recovered/Resolved]

NARRATIVE: CASE EVENT DATE: 20241101
